FAERS Safety Report 23503776 (Version 2)
Quarter: 2024Q2

REPORT INFORMATION
  Report Type: Spontaneous
  Country: RU (occurrence: RU)
  Receive Date: 20240209
  Receipt Date: 20240516
  Transmission Date: 20240716
  Serious: Yes (Life-Threatening, Hospitalization, Other)
  Sender: FDA-Public Use
  Company Number: RU-ABBVIE-5621064

PATIENT
  Age: 9 Year
  Sex: Male
  Weight: 39 kg

DRUGS (14)
  1. SEVOFLURANE [Suspect]
     Active Substance: SEVOFLURANE
     Indication: General anaesthesia
     Dosage: 2.5 VOL%, GAS FLOW 3.0 L/MIN, INHALATION GAS
     Route: 055
     Dates: start: 20230916, end: 20230916
  2. EPINEPHRINE [Concomitant]
     Active Substance: EPINEPHRINE
     Indication: Anaphylactic shock
     Dosage: 0.1% - 0.2 MILLIGRAM
     Route: 040
     Dates: start: 20230916, end: 20230916
  3. EPINEPHRINE [Concomitant]
     Active Substance: EPINEPHRINE
     Indication: Anaphylactic shock
     Dosage: 0.1% - 0.06 MCG/KG/MIN
     Route: 040
     Dates: start: 20230916, end: 20230916
  4. TRACRIUM [Suspect]
     Active Substance: ATRACURIUM BESYLATE
     Indication: Endotracheal intubation
     Route: 065
     Dates: start: 20230916, end: 20230916
  5. MIDAZOLAM [Concomitant]
     Active Substance: MIDAZOLAM
     Indication: Anaphylactic shock
     Dosage: 0.5% - 5 MG
     Route: 042
     Dates: start: 20230916, end: 20230916
  6. DOPAMINE [Concomitant]
     Active Substance: DOPAMINE HYDROCHLORIDE
     Indication: Anaphylactic shock
     Dosage: 0,5% SOLUTION, SPEED 2,5---2,5---4,0 MCG/KG/MIN
     Route: 042
     Dates: start: 20230916, end: 20230916
  7. PROPOFOL [Suspect]
     Active Substance: PROPOFOL
     Indication: General anaesthesia
     Dosage: 1% - 100 MG
     Route: 065
     Dates: start: 20230916, end: 20230916
  8. ROCURONIUM BROMIDE [Concomitant]
     Active Substance: ROCURONIUM BROMIDE
     Indication: Anaphylactic shock
     Route: 042
     Dates: start: 20230916, end: 20230916
  9. Ethamsylate ferein [Concomitant]
     Indication: Adjuvant therapy
     Dosage: 12.5% SOLUTION - 250 MG
     Route: 065
     Dates: start: 20230916, end: 20230916
  10. SODIUM CHLORIDE [Concomitant]
     Active Substance: SODIUM CHLORIDE
     Indication: Adjuvant therapy
     Dosage: 0.9% - 200 MILLILITERS
     Route: 041
     Dates: start: 20230916, end: 20230916
  11. CEFTRIAXONE [Suspect]
     Active Substance: CEFTRIAXONE\CEFTRIAXONE SODIUM
     Indication: Antibiotic prophylaxis
     Route: 065
     Dates: start: 20230916, end: 20230916
  12. FENTANYL [Suspect]
     Active Substance: FENTANYL\FENTANYL CITRATE
     Indication: Induction of anaesthesia
     Dosage: 0.005% - 0.1 MG
     Route: 065
     Dates: start: 20230916, end: 20230916
  13. CETIRIZINE [Concomitant]
     Active Substance: CETIRIZINE HYDROCHLORIDE
     Indication: Product used for unknown indication
     Route: 048
     Dates: start: 20230916, end: 20230919
  14. DEXAMETHASONE [Suspect]
     Active Substance: DEXAMETHASONE
     Indication: Anaphylactic shock
     Route: 042
     Dates: start: 20230916, end: 20230916

REACTIONS (4)
  - Anaphylactic shock [Unknown]
  - Hypotension [Unknown]
  - Hypopnoea [Unknown]
  - Oropharyngeal pain [Unknown]

NARRATIVE: CASE EVENT DATE: 20230916
